FAERS Safety Report 16337122 (Version 1)
Quarter: 2019Q2

REPORT INFORMATION
  Report Type: Spontaneous
  Country: US (occurrence: US)
  Receive Date: 20190521
  Receipt Date: 20190521
  Transmission Date: 20190711
  Serious: No
  Sender: FDA-Public Use
  Company Number: US-PFIZER INC-2019209320

PATIENT
  Age: 56 Year
  Sex: Male
  Weight: 74.84 kg

DRUGS (1)
  1. GENOTROPIN MQ [Suspect]
     Active Substance: SOMATROPIN
     Indication: MYALGIA
     Dosage: UNK UNK, DAILY (UNKNOWN DOSAGE INJECTED SELF IN BELLY OR SMALL FATTY AREA EVERY DAY FOR 6 DAYS)

REACTIONS (8)
  - Product use in unapproved indication [Unknown]
  - Finger deformity [Not Recovered/Not Resolved]
  - Off label use [Unknown]
  - Arthritis [Not Recovered/Not Resolved]
  - Arthralgia [Not Recovered/Not Resolved]
  - Gait disturbance [Not Recovered/Not Resolved]
  - Pain in extremity [Not Recovered/Not Resolved]
  - Extremity contracture [Not Recovered/Not Resolved]
